FAERS Safety Report 15421272 (Version 6)
Quarter: 2020Q2

REPORT INFORMATION
  Report Type: Report from Study
  Country: US (occurrence: US)
  Receive Date: 20180924
  Receipt Date: 20200504
  Transmission Date: 20200713
  Serious: Yes (Hospitalization, Other)
  Sender: FDA-Public Use
  Company Number: US-ACTELION-A-NJ2018-178439

PATIENT
  Age: 77 Year
  Sex: Male
  Weight: 92.06 kg

DRUGS (8)
  1. BUMEX [Concomitant]
     Active Substance: BUMETANIDE
     Dosage: 2 MG, QD
     Route: 048
  2. FOLIC ACID. [Concomitant]
     Active Substance: FOLIC ACID
  3. SINGULAIR [Concomitant]
     Active Substance: MONTELUKAST SODIUM
  4. COUMADIN [Suspect]
     Active Substance: WARFARIN SODIUM
     Indication: ATRIAL FIBRILLATION
     Dosage: 15 MG, QD
     Route: 048
     Dates: start: 20121123
  5. SILDENAFIL CITRATE. [Concomitant]
     Active Substance: SILDENAFIL CITRATE
     Dosage: 20 MG, TID
     Route: 048
  6. OPSUMIT [Suspect]
     Active Substance: MACITENTAN
     Indication: PULMONARY ARTERIAL HYPERTENSION
     Dosage: 10 MG, QD
     Route: 048
     Dates: start: 20180823
  7. MIDODRINE [Concomitant]
     Active Substance: MIDODRINE
  8. ALDACTONE [Concomitant]
     Active Substance: SPIRONOLACTONE
     Dosage: 50 MG, BID

REACTIONS (19)
  - Haemoglobin decreased [Recovering/Resolving]
  - Syncope [Unknown]
  - Full blood count decreased [Unknown]
  - Head injury [Unknown]
  - Skin neoplasm excision [Unknown]
  - Gastrointestinal haemorrhage [Recovering/Resolving]
  - Dyspnoea [Unknown]
  - Fall [Unknown]
  - Clavicle fracture [Unknown]
  - Transfusion [Recovering/Resolving]
  - Iron deficiency anaemia [Recovering/Resolving]
  - Spinal fracture [Unknown]
  - Weight increased [Recovered/Resolved]
  - Haematocrit decreased [Recovering/Resolving]
  - Red blood cell count decreased [Recovered/Resolved]
  - Skin cancer [Unknown]
  - Oedema peripheral [Not Recovered/Not Resolved]
  - Product dose omission [Recovered/Resolved]
  - Dizziness [Unknown]

NARRATIVE: CASE EVENT DATE: 20180910
